FAERS Safety Report 10180200 (Version 1)
Quarter: 2014Q2

REPORT INFORMATION
  Report Type: Spontaneous
  Country: US (occurrence: US)
  Receive Date: 20140519
  Receipt Date: 20140519
  Transmission Date: 20141212
  Serious: Yes (Other)
  Sender: FDA-Public Use
  Company Number: US-ASTRAZENECA-2014SE26261

PATIENT
  Age: 61 Year
  Sex: Male

DRUGS (8)
  1. CRESTOR [Suspect]
     Indication: CORONARY ARTERY DISEASE
     Route: 048
     Dates: start: 2007
  2. CRESTOR [Suspect]
     Indication: CORONARY ARTERY DISEASE
     Route: 048
     Dates: start: 2007
  3. CRESTOR [Suspect]
     Indication: CORONARY ARTERY DISEASE
     Route: 048
  4. EFFIENT [Concomitant]
     Indication: ANTICOAGULANT THERAPY
     Route: 048
  5. LOSARTAN [Concomitant]
     Indication: BLOOD PRESSURE ABNORMAL
     Route: 048
  6. PANTOPROZOLE [Concomitant]
     Indication: GASTROOESOPHAGEAL REFLUX DISEASE
     Route: 048
  7. HCTZ [Concomitant]
     Indication: DIURETIC THERAPY
     Route: 048
  8. ASPIRIN [Concomitant]
     Indication: ANTICOAGULANT THERAPY
     Dosage: ONE HALF 325 MG TAB DAILY
     Route: 048

REACTIONS (3)
  - Myocardial infarction [Unknown]
  - Exercise tolerance decreased [Unknown]
  - Intentional product misuse [Unknown]
